FAERS Safety Report 11468730 (Version 1)
Quarter: 2015Q3

REPORT INFORMATION
  Report Type: Spontaneous
  Country: US (occurrence: None)
  Receive Date: 20150904
  Receipt Date: 20150904
  Transmission Date: 20151125
  Serious: No
  Sender: FDA-Public Use
  Company Number: None

PATIENT
  Age: 62 Year
  Sex: Female

DRUGS (15)
  1. SILDENAFIL. [Concomitant]
     Active Substance: SILDENAFIL
  2. FERROUS SULFATE [Concomitant]
     Active Substance: FERROUS SULFATE\FERROUS SULFATE, DRIED
  3. VIT B COMPLEX [Concomitant]
  4. LETAIRIS [Suspect]
     Active Substance: AMBRISENTAN
     Indication: PULMONARY ARTERIAL HYPERTENSION
     Route: 048
     Dates: start: 20150725, end: 20150819
  5. ASPIRIN. [Concomitant]
     Active Substance: ASPIRIN
  6. BUPROPION. [Concomitant]
     Active Substance: BUPROPION
  7. DIGOXIN. [Concomitant]
     Active Substance: DIGOXIN
  8. LETAIRIS [Concomitant]
     Active Substance: AMBRISENTAN
  9. LASIX [Concomitant]
     Active Substance: FUROSEMIDE
  10. METHYLPHENIDATE. [Concomitant]
     Active Substance: METHYLPHENIDATE
  11. OXCARBAZEPINE. [Concomitant]
     Active Substance: OXCARBAZEPINE
  12. METOPROLOL [Concomitant]
     Active Substance: METOPROLOL
  13. ARIPIPRAZOLE. [Concomitant]
     Active Substance: ARIPIPRAZOLE
  14. CLONAZEPAM. [Concomitant]
     Active Substance: CLONAZEPAM
  15. VENLAFAXINE [Concomitant]
     Active Substance: VENLAFAXINE HYDROCHLORIDE

REACTIONS (1)
  - Haematocrit decreased [None]

NARRATIVE: CASE EVENT DATE: 20150819
